FAERS Safety Report 8172513-0 (Version None)
Quarter: 2012Q1

REPORT INFORMATION
  Report Type: 
  Country: None (occurrence: None)
  Receive Date: 20120227
  Receipt Date: 20120227
  Transmission Date: 20120608
  Serious: Yes (Death)
  Sender: FDA-Public Use
  Company Number: None

PATIENT
  Age: 38 Year
  Sex: Male
  Weight: 86 kg

DRUGS (6)
  1. MULTI-VITAMIN [Concomitant]
  2. AMOXICILLIN [Suspect]
     Dosage: 1500MG/DAY PO
     Route: 048
     Dates: end: 20100603
  3. CREATINE POWDER [Concomitant]
  4. HORNY GOAT WEEK [Concomitant]
  5. WHEY PROTEIN [Concomitant]
  6. SUPER NOS PUMP [Concomitant]

REACTIONS (13)
  - HAEMODYNAMIC INSTABILITY [None]
  - HYPERCOAGULATION [None]
  - PYREXIA [None]
  - HAEMATOMA [None]
  - OEDEMA PERIPHERAL [None]
  - MELAENA [None]
  - GASTROINTESTINAL HAEMORRHAGE [None]
  - HEPATIC ARTERY THROMBOSIS [None]
  - HEPATIC NECROSIS [None]
  - HEPATIC FUNCTION ABNORMAL [None]
  - ENCEPHALOPATHY [None]
  - LEUKOCYTOSIS [None]
  - METABOLIC ACIDOSIS [None]
